FAERS Safety Report 5903539-2 (Version None)
Quarter: 2008Q3

REPORT INFORMATION
  Report Type: 
  Country: None (occurrence: None)
  Receive Date: 20080919
  Receipt Date: 20080821
  Transmission Date: 20090109
  Serious: No
  Sender: FDA-Public Use
  Company Number: US-WYE-H05670508

PATIENT
  Age: 62 Year
  Sex: Female
  Weight: 80.81 kg

DRUGS (9)
  1. PRISTIQ [Suspect]
     Indication: DEPRESSION
     Dosage: 50 MG 1X PER 1 DAY, ORAL
     Route: 048
     Dates: start: 20080801
  2. NEXIUM [Concomitant]
  3. BUMEX [Concomitant]
  4. ZANTAC 150 [Concomitant]
  5. NASONEX [Concomitant]
  6. XANAX [Concomitant]
  7. RESTORIL [Concomitant]
  8. ADVAIR DISKUS 100/50 [Concomitant]
  9. NOVOLOG [Concomitant]

REACTIONS (3)
  - DYSKINESIA [None]
  - NAUSEA [None]
  - TREMOR [None]
